FAERS Safety Report 5361501-5 (Version None)
Quarter: 2007Q2

REPORT INFORMATION
  Report Type: 
  Country: None (occurrence: None)
  Receive Date: 20070530
  Receipt Date: 20070102
  Transmission Date: 20071010
  Serious: No
  Sender: FDA-Public Use
  Company Number: 2007PV027541

PATIENT
  Age: 62 Year
  Sex: Female
  Weight: 131.5431 kg

DRUGS (5)
  1. BYETTA [Suspect]
     Indication: DIABETES MELLITUS NON-INSULIN-DEPENDENT
     Dosage: 10 MCG;BID;SC ; 5 MCG;BID;SC
     Route: 058
     Dates: start: 20061101, end: 20061204
  2. BYETTA [Suspect]
     Indication: DIABETES MELLITUS NON-INSULIN-DEPENDENT
     Dosage: 10 MCG;BID;SC ; 5 MCG;BID;SC
     Route: 058
     Dates: start: 20061205
  3. ACTOS [Concomitant]
  4. ZOLOFT [Concomitant]
  5. AMARYL [Concomitant]

REACTIONS (23)
  - ALBUMIN URINE PRESENT [None]
  - ARTHRITIS [None]
  - ASTHENIA [None]
  - BLOOD GLUCOSE ABNORMAL [None]
  - BLOOD GLUCOSE DECREASED [None]
  - CHILLS [None]
  - CONSTIPATION [None]
  - COUGH [None]
  - CYSTITIS [None]
  - DECREASED APPETITE [None]
  - DEPRESSION [None]
  - DISTURBANCE IN ATTENTION [None]
  - FATIGUE [None]
  - FLUID RETENTION [None]
  - INJECTION SITE BRUISING [None]
  - INJECTION SITE HAEMORRHAGE [None]
  - INJECTION SITE PAIN [None]
  - INSOMNIA [None]
  - NASAL CONGESTION [None]
  - NASOPHARYNGITIS [None]
  - NAUSEA [None]
  - OEDEMA PERIPHERAL [None]
  - WEIGHT DECREASED [None]
